FAERS Safety Report 5201970-4 (Version None)
Quarter: 2007Q1

REPORT INFORMATION
  Report Type: 
  Country: None (occurrence: None)
  Receive Date: 20070104
  Receipt Date: 20070104
  Transmission Date: 20070707
  Serious: Yes (Death, Hospitalization)
  Sender: FDA-Public Use
  Company Number: None

PATIENT
  Sex: Male
  Weight: 51.2565 kg

DRUGS (2)
  1. RISPERDAL [Suspect]
     Indication: ABNORMAL BEHAVIOUR
     Dosage: 1MG  BID  TWICE DAILY
     Dates: start: 20060906, end: 20061008
  2. DEPAKOTE [Concomitant]

REACTIONS (3)
  - DEHYDRATION [None]
  - DYSPHAGIA [None]
  - PNEUMONIA ASPIRATION [None]
